FAERS Safety Report 14424340 (Version 1)
Quarter: 2018Q1

REPORT INFORMATION
  Report Type: Spontaneous
  Country: CA (occurrence: CA)
  Receive Date: 20180123
  Receipt Date: 20180123
  Transmission Date: 20180509
  Serious: Yes (Hospitalization)
  Sender: FDA-Public Use
  Company Number: CA-MYLANLABS-2018M1001655

PATIENT
  Age: 76 Year
  Sex: Female

DRUGS (1)
  1. RYTHMOL [Suspect]
     Active Substance: PROPAFENONE HYDROCHLORIDE
     Indication: ATRIAL FIBRILLATION
     Dosage: 150 MG, BID (1 IN THE MORNING AND 2 IN THE EVENING)
     Route: 048
     Dates: start: 201607

REACTIONS (3)
  - Atrial fibrillation [Recovered/Resolved]
  - Cardioversion [Recovering/Resolving]
  - Product appearance confusion [Unknown]

NARRATIVE: CASE EVENT DATE: 20171214
